FAERS Safety Report 15675488 (Version 3)
Quarter: 2019Q1

REPORT INFORMATION
  Report Type: Spontaneous
  Country: US (occurrence: US)
  Receive Date: 20181130
  Receipt Date: 20190125
  Transmission Date: 20190417
  Serious: No
  Sender: FDA-Public Use
  Company Number: US-ASTRAZENECA-2018SF51427

PATIENT
  Sex: Female
  Weight: 79.4 kg

DRUGS (6)
  1. AMLODIPINE [Concomitant]
     Active Substance: AMLODIPINE BESYLATE
     Indication: HYPERTENSION
     Route: 048
  2. VENTOLIN ALBUTEROL [Concomitant]
     Indication: PROPHYLAXIS
     Dosage: 2 PUFFS UP TO 4 TIMES A DAY
     Route: 055
  3. ROSUVASTATIN. [Suspect]
     Active Substance: ROSUVASTATIN
     Indication: BLOOD CHOLESTEROL ABNORMAL
     Route: 048
  4. NEBULIZER ALBUTEROL - IPRATROPIUM BROMIDE [Concomitant]
     Dosage: 4 TIMES A DAY
     Route: 065
  5. SYMBICORT [Suspect]
     Active Substance: BUDESONIDE\FORMOTEROL FUMARATE DIHYDRATE
     Indication: CHRONIC OBSTRUCTIVE PULMONARY DISEASE
     Dosage: 80/4.5 UG UNKNOWN
     Route: 055
     Dates: start: 201307
  6. SYMBICORT [Suspect]
     Active Substance: BUDESONIDE\FORMOTEROL FUMARATE DIHYDRATE
     Indication: CHRONIC OBSTRUCTIVE PULMONARY DISEASE
     Dosage: 160/4.5 MCG 2 PUFFS TWICE DAILY UNKNOWN
     Route: 055

REACTIONS (9)
  - Hypercholesterolaemia [Unknown]
  - Device occlusion [Unknown]
  - Overweight [Unknown]
  - Device malfunction [Unknown]
  - Intentional device misuse [Unknown]
  - Chronic obstructive pulmonary disease [Unknown]
  - Wrong technique in device usage process [Unknown]
  - Blood pressure increased [Unknown]
  - Incorrect dosage administered [Unknown]
